FAERS Safety Report 19738777 (Version 1)
Quarter: 2021Q3

REPORT INFORMATION
  Report Type: Spontaneous
  Country: US (occurrence: US)
  Receive Date: 20210824
  Receipt Date: 20210824
  Transmission Date: 20211014
  Serious: No
  Sender: FDA-Public Use
  Company Number: US-ASTELLAS-2021US022526

PATIENT
  Age: 42 Year
  Sex: Male

DRUGS (2)
  1. AMBISOME [Suspect]
     Active Substance: AMPHOTERICIN B
     Indication: HIV TEST POSITIVE
     Dosage: 250 MG, ONCE DAILY (11 DOSES GIVEN, Q24 HOUR DOSING; 250 MG/250 ML D5W)
     Route: 042
     Dates: start: 20210610, end: 20210620
  2. AMBISOME [Suspect]
     Active Substance: AMPHOTERICIN B
     Indication: MENINGITIS CRYPTOCOCCAL

REACTIONS (2)
  - Product storage error [Unknown]
  - Product administration error [Unknown]

NARRATIVE: CASE EVENT DATE: 20210614
